FAERS Safety Report 20246750 (Version 2)
Quarter: 2022Q1

REPORT INFORMATION
  Report Type: Spontaneous
  Country: IT (occurrence: IT)
  Receive Date: 20211229
  Receipt Date: 20220127
  Transmission Date: 20220424
  Serious: Yes (Death, Life-Threatening, Hospitalization, Other)
  Sender: FDA-Public Use
  Company Number: IT-EMA-DD-20211223-Bisht_p-110041

PATIENT
  Age: 66 Year
  Sex: Male

DRUGS (18)
  1. ACYCLOVIR [Suspect]
     Active Substance: ACYCLOVIR
     Indication: Herpes simplex
     Dosage: 2400 MG, QD (800 MG, TID (3/DAY))
     Route: 065
  2. ACYCLOVIR [Suspect]
     Active Substance: ACYCLOVIR
     Indication: Confusional state
  3. AZITHROMYCIN DIHYDRATE [Interacting]
     Active Substance: AZITHROMYCIN DIHYDRATE
     Indication: COVID-19
     Dosage: 500 MG, QD (500 MG/ DAY)
     Route: 065
  4. AZITHROMYCIN DIHYDRATE [Interacting]
     Active Substance: AZITHROMYCIN DIHYDRATE
     Indication: Off label use
     Dosage: UNK
     Route: 065
  5. MIDAZOLAM [Suspect]
     Active Substance: MIDAZOLAM
     Indication: Confusional state
     Dosage: UNK
     Route: 065
  6. MIDAZOLAM [Suspect]
     Active Substance: MIDAZOLAM
     Indication: Agitation
  7. TOCILIZUMAB [Suspect]
     Active Substance: TOCILIZUMAB
     Indication: COVID-19
     Dosage: 324 MG, QD (162 MG, IN 2 DIFFERENT SITES)
     Route: 058
  8. TOCILIZUMAB [Suspect]
     Active Substance: TOCILIZUMAB
     Indication: Respiratory failure
     Dosage: 164 MG (TWO DIFFERENT SITES)
     Route: 058
  9. TOCILIZUMAB [Suspect]
     Active Substance: TOCILIZUMAB
     Indication: Interstitial lung disease
  10. MORPHINE SULFATE [Suspect]
     Active Substance: MORPHINE SULFATE
     Indication: Product used for unknown indication
     Dosage: UNK
     Route: 065
  11. METHYLPREDNISOLONE [Suspect]
     Active Substance: METHYLPREDNISOLONE
     Indication: COVID-19
     Dosage: 40 MG, QD (40 MG, DAILY)
     Route: 065
  12. METHYLPREDNISOLONE [Suspect]
     Active Substance: METHYLPREDNISOLONE
     Dosage: 80 MG (THEN TAPERED TO 40 MG/DAY FOR 3 DAYS AND 20 MG/DAY FOR 1 DAY.)
     Route: 065
  13. METHYLPREDNISOLONE [Suspect]
     Active Substance: METHYLPREDNISOLONE
     Dosage: 20 MG, QD
     Route: 065
  14. HYDROXYCHLOROQUINE [Interacting]
     Active Substance: HYDROXYCHLOROQUINE
     Indication: COVID-19
     Dosage: 400 MG, QD (200 MG, BID)
     Route: 065
  15. HYDROXYCHLOROQUINE [Interacting]
     Active Substance: HYDROXYCHLOROQUINE
     Dosage: 800 MG, QD
     Route: 065
  16. MORPHINE [Concomitant]
     Active Substance: MORPHINE
     Indication: Product used for unknown indication
     Dosage: UNK
     Route: 065
  17. HYDROXYCHLOROQUINE [Interacting]
     Active Substance: HYDROXYCHLOROQUINE
     Indication: COVID-19
     Dosage: 400 MG (0.5   DAY)
     Route: 065
  18. HYDROXYCHLOROQUINE [Interacting]
     Active Substance: HYDROXYCHLOROQUINE
     Dosage: 200 MG (TAPERED TO 200 MG/TWICE A DAY FOR THE FOLLOWING 4 DAYS  )
     Route: 065

REACTIONS (18)
  - Acute hepatic failure [Fatal]
  - Metabolic acidosis [Fatal]
  - Septic shock [Fatal]
  - Off label use [Fatal]
  - Herpes simplex [Fatal]
  - Liver function test [Fatal]
  - Hypotension [Unknown]
  - Stupor [Unknown]
  - Acute kidney injury [Unknown]
  - Herpes simplex viraemia [Unknown]
  - Neurological examination abnormal [Unknown]
  - Shock haemorrhagic [Unknown]
  - Confusional state [Unknown]
  - Agitation [Unknown]
  - Pupils unequal [Unknown]
  - Drug interaction [Unknown]
  - Product use in unapproved indication [Unknown]
  - Product use issue [Unknown]
